FAERS Safety Report 6704077-X (Version None)
Quarter: 2010Q2

REPORT INFORMATION
  Report Type: 
  Country: None (occurrence: None)
  Receive Date: 20100430
  Receipt Date: 20091207
  Transmission Date: 20101027
  Serious: Yes (Hospitalization)
  Sender: FDA-Public Use
  Company Number: AT-SANOFI-AVENTIS-2009SA007534

PATIENT
  Age: 48 Year

DRUGS (8)
  1. OXALIPLATIN [Suspect]
     Indication: COLON CANCER
     Route: 042
     Dates: start: 20080408, end: 20080408
  2. OXALIPLATIN [Suspect]
     Route: 042
     Dates: start: 20080506, end: 20080506
  3. CETUXIMAB [Suspect]
     Indication: COLON CANCER
     Route: 042
     Dates: start: 20080408, end: 20080408
  4. CETUXIMAB [Suspect]
     Route: 042
     Dates: start: 20080506, end: 20080506
  5. FLUOROURACIL [Suspect]
     Indication: COLON CANCER
     Route: 042
     Dates: start: 20080408, end: 20080408
  6. FLUOROURACIL [Suspect]
     Route: 042
     Dates: start: 20080507, end: 20080507
  7. FOLINIC ACID [Suspect]
     Indication: COLON CANCER
     Route: 042
     Dates: start: 20080408, end: 20080408
  8. FOLINIC ACID [Suspect]
     Route: 042
     Dates: start: 20080507, end: 20080507

REACTIONS (2)
  - BACTERIAL DIARRHOEA [None]
  - VASCULAR INJURY [None]
